FAERS Safety Report 5799057-5 (Version None)
Quarter: 2008Q3

REPORT INFORMATION
  Report Type: 
  Country: None (occurrence: None)
  Receive Date: 20080701
  Receipt Date: 20080624
  Transmission Date: 20090109
  Serious: No
  Sender: FDA-Public Use
  Company Number: C-08-0015-W

PATIENT
  Age: 48 Year
  Sex: Male
  Weight: 68.0396 kg

DRUGS (3)
  1. RANITIDINE [Suspect]
     Indication: PANCREATITIS
     Dosage: 1 TABLET 2X/DAY ORALLY
     Route: 048
     Dates: start: 20060101, end: 20080601
  2. VIOKASE [Concomitant]
  3. LACTULOSE [Concomitant]

REACTIONS (1)
  - DRUG SCREEN FALSE POSITIVE [None]
